FAERS Safety Report 6409041-6 (Version None)
Quarter: 2009Q4

REPORT INFORMATION
  Report Type: 
  Country: None (occurrence: None)
  Receive Date: 20091019
  Receipt Date: 20091007
  Transmission Date: 20100525
  Serious: Yes (Other)
  Sender: FDA-Public Use
  Company Number: 231639J09USA

PATIENT
  Age: 41 Year
  Sex: Female

DRUGS (8)
  1. REBIF [Suspect]
     Indication: MULTIPLE SCLEROSIS
     Dosage: 44 MCG, 3 IN 1 WEEKS, SUBCUTANEOUS
     Route: 058
     Dates: start: 20090122
  2. SYNTHROID [Concomitant]
  3. IRON (IRON) [Concomitant]
  4. PROZAC [Concomitant]
  5. FLOMAX (MORNIFLUMATE) [Concomitant]
  6. TOPIRAMATE [Concomitant]
  7. BACLOFEN [Concomitant]
  8. BUPROPION HYDROCHLORIDE SUSTAINED RELEASE (BUPROPION HYDROCHLORIDE) [Concomitant]

REACTIONS (3)
  - BLEPHAROSPASM [None]
  - GLAUCOMA [None]
  - VISION BLURRED [None]
